FAERS Safety Report 8433527-6 (Version None)
Quarter: 2012Q2

REPORT INFORMATION
  Report Type: 
  Country: None (occurrence: None)
  Receive Date: 20120613
  Receipt Date: 20120608
  Transmission Date: 20120825
  Serious: Yes (Other)
  Sender: FDA-Public Use
  Company Number: US-TEVA-342251USA

PATIENT
  Age: 13 Year
  Sex: Female

DRUGS (1)
  1. CLARAVIS [Suspect]
     Route: 048

REACTIONS (1)
  - SUICIDAL IDEATION [None]
